FAERS Safety Report 14685629 (Version 3)
Quarter: 2018Q1

REPORT INFORMATION
  Report Type: Spontaneous
  Country: EE (occurrence: UA)
  Receive Date: 20180327
  Receipt Date: 20180328
  Transmission Date: 20180509
  Serious: Yes (Hospitalization, Other)
  Sender: FDA-Public Use
  Company Number: EE-BAYER-2018-051203

PATIENT
  Age: 35 Year
  Sex: Female

DRUGS (1)
  1. ASPIRIN CARDIO 100 MG [Suspect]
     Active Substance: ASPIRIN
     Dosage: UNK, SINCE 12TH GESTATIONAL WEEK
     Dates: start: 2017, end: 2018

REACTIONS (6)
  - Amniorrhoea [None]
  - Exposure during pregnancy [None]
  - Gestational diabetes [None]
  - Abortion spontaneous [None]
  - Premature delivery [None]
  - Haemorrhage in pregnancy [None]

NARRATIVE: CASE EVENT DATE: 20170522
